FAERS Safety Report 20650050 (Version 1)
Quarter: 2022Q1

REPORT INFORMATION
  Report Type: Spontaneous
  Country: PE (occurrence: PE)
  Receive Date: 20220329
  Receipt Date: 20220329
  Transmission Date: 20220423
  Serious: Yes (Other)
  Sender: FDA-Public Use
  Company Number: PE-009507513-2203PER007393

PATIENT
  Age: 45 Year
  Sex: Male

DRUGS (4)
  1. ERTAPENEM SODIUM [Suspect]
     Active Substance: ERTAPENEM SODIUM
     Dosage: UNK
     Dates: start: 202009
  2. IMIPENEM [Suspect]
     Active Substance: IMIPENEM
     Dosage: UNK
     Dates: start: 202009
  3. VANCOMYCIN [Suspect]
     Active Substance: VANCOMYCIN
     Dosage: UNK
     Dates: start: 202009
  4. CLARITHROMYCIN [Suspect]
     Active Substance: CLARITHROMYCIN
     Dosage: UNK
     Dates: start: 202009

REACTIONS (1)
  - Pathogen resistance [Unknown]
